FAERS Safety Report 10722478 (Version 1)
Quarter: 2015Q1

REPORT INFORMATION
  Report Type: Spontaneous
  Country: US (occurrence: US)
  Receive Date: 20150119
  Receipt Date: 20150119
  Transmission Date: 20150721
  Serious: No
  Sender: FDA-Public Use
  Company Number: US-BAUSCH-BL-2014-006342

PATIENT
  Age: 61 Year
  Sex: Male
  Weight: 88.53 kg

DRUGS (1)
  1. OXSORALEN [Suspect]
     Active Substance: METHOXSALEN
     Indication: SKIN DISCOLOURATION
     Dosage: APPLIED ONCE DAILY ON FACE AT BEDTIME
     Route: 061
     Dates: start: 201408, end: 201409

REACTIONS (1)
  - Drug ineffective [Recovered/Resolved]

NARRATIVE: CASE EVENT DATE: 201408
